FAERS Safety Report 5137958-1 (Version None)
Quarter: 2006Q4

REPORT INFORMATION
  Report Type: 
  Country: None (occurrence: None)
  Receive Date: 20061030
  Receipt Date: 20060322
  Transmission Date: 20070319
  Serious: No
  Sender: FDA-Public Use
  Company Number: US-GLAXOSMITHKLINE-A0598637A

PATIENT
  Age: 71 Year
  Sex: Male

DRUGS (8)
  1. ADVAIR HFA [Suspect]
     Indication: CHRONIC OBSTRUCTIVE PULMONARY DISEASE
     Dosage: 1PUFF TWICE PER DAY
     Route: 055
     Dates: start: 20051001, end: 20060201
  2. LIPITOR [Suspect]
     Indication: BLOOD CHOLESTEROL INCREASED
     Dosage: 10MG PER DAY
     Route: 048
  3. LANOXIN [Concomitant]
  4. IMDUR [Concomitant]
  5. LOPRESSOR [Concomitant]
  6. COUMADIN [Concomitant]
  7. PRILOSEC [Concomitant]
  8. ZOLOFT [Concomitant]

REACTIONS (2)
  - MUSCLE SPASMS [None]
  - NAUSEA [None]
